FAERS Safety Report 13668705 (Version 1)
Quarter: 2017Q2

REPORT INFORMATION
  Report Type: Spontaneous
  Country: US (occurrence: US)
  Receive Date: 20170620
  Receipt Date: 20170620
  Transmission Date: 20170830
  Serious: No
  Sender: FDA-Public Use
  Company Number: US-PFIZER INC-2017260812

PATIENT
  Age: 46 Year
  Sex: Female
  Weight: 94.33 kg

DRUGS (7)
  1. LYRICA [Suspect]
     Active Substance: PREGABALIN
     Indication: INTERVERTEBRAL DISC DEGENERATION
     Dosage: 75 MG, DAILY
     Route: 048
     Dates: start: 201611
  2. MOTRIN [Concomitant]
     Active Substance: IBUPROFEN
     Indication: INFLAMMATION
  3. LYRICA [Suspect]
     Active Substance: PREGABALIN
     Dosage: 75 MG, 2X/DAY
     Route: 048
  4. MELOXICAM. [Concomitant]
     Active Substance: MELOXICAM
     Dosage: UNK
  5. LYRICA [Suspect]
     Active Substance: PREGABALIN
     Dosage: UNK, ALTERNATE DAY (TAKING IT EVERY OTHER DAY)
     Route: 048
  6. MOTRIN [Concomitant]
     Active Substance: IBUPROFEN
     Indication: JOINT SWELLING
     Dosage: 800 MG, 2X/DAY
     Route: 048
  7. MOTRIN [Concomitant]
     Active Substance: IBUPROFEN
     Indication: LOCAL SWELLING

REACTIONS (4)
  - Intentional product misuse [Unknown]
  - Skin discolouration [Recovering/Resolving]
  - Acne [Recovering/Resolving]
  - Drug dose omission [Unknown]
